FAERS Safety Report 9742660 (Version 2)
Quarter: 2013Q4

REPORT INFORMATION
  Report Type: Spontaneous
  Country: US (occurrence: US)
  Receive Date: 20131210
  Receipt Date: 20131210
  Transmission Date: 20140711
  Serious: No
  Sender: FDA-Public Use
  Company Number: US-GILEAD-2009-0024504

PATIENT
  Age: 59 Year
  Sex: Female

DRUGS (5)
  1. LETAIRIS [Suspect]
     Indication: PULMONARY ARTERIAL HYPERTENSION
     Route: 048
     Dates: start: 20090623
  2. NAPROXEN [Concomitant]
  3. SPIRONOLACTONE [Concomitant]
  4. BUMETANIDE [Concomitant]
  5. PRILOSEC [Concomitant]

REACTIONS (5)
  - Ocular icterus [Not Recovered/Not Resolved]
  - Eye pruritus [Not Recovered/Not Resolved]
  - Lacrimation increased [Not Recovered/Not Resolved]
  - Blood bilirubin increased [Unknown]
  - Blood alkaline phosphatase increased [Unknown]
